FAERS Safety Report 16828501 (Version 1)
Quarter: 2019Q3

REPORT INFORMATION
  Report Type: Spontaneous
  Country: US (occurrence: US)
  Receive Date: 20190919
  Receipt Date: 20190919
  Transmission Date: 20191005
  Serious: No
  Sender: FDA-Public Use
  Company Number: US-SA-2019SA257671

PATIENT
  Age: 3 Year
  Sex: Male
  Weight: 12.7 kg

DRUGS (7)
  1. NORMAL SALINE [Concomitant]
     Active Substance: SODIUM CHLORIDE
     Dosage: 0.90 %, UNK
     Route: 042
     Dates: start: 20190523
  2. CEREZYME [Suspect]
     Active Substance: IMIGLUCERASE
     Indication: GAUCHER^S DISEASE
     Dosage: 800 UNITS, QOW
     Route: 041
     Dates: start: 20180605
  3. STERILE WATER [Concomitant]
     Active Substance: WATER
     Dosage: 1 DF, UNK
     Route: 042
     Dates: start: 20190523
  4. SODIUM CHLORIDE. [Concomitant]
     Active Substance: SODIUM CHLORIDE
     Dosage: 0.90 %, UNK
     Route: 042
     Dates: start: 20190523
  5. LMX [LIDOCAINE] [Concomitant]
     Indication: PROPHYLAXIS
     Dosage: 4 %, UNK
     Route: 061
     Dates: start: 20190523
  6. HEPARIN [Concomitant]
     Active Substance: HEPARIN SODIUM
     Dosage: 100 UNITS/ML
     Route: 042
     Dates: start: 20190523
  7. EPINEPHRINE. [Concomitant]
     Active Substance: EPINEPHRINE
     Indication: ANAPHYLACTIC REACTION
     Dosage: 0.15 MG, PRN
     Route: 030
     Dates: start: 20190523

REACTIONS (3)
  - Dyspnoea [Recovered/Resolved]
  - Sputum retention [Recovered/Resolved]
  - Cough [Recovered/Resolved]
